FAERS Safety Report 9116742 (Version 1)
Quarter: 2013Q1

REPORT INFORMATION
  Report Type: Spontaneous
  Country: US (occurrence: US)
  Receive Date: 20130225
  Receipt Date: 20130225
  Transmission Date: 20140127
  Serious: Yes (Other)
  Sender: FDA-Public Use
  Company Number: US-PFIZER INC-2013067604

PATIENT
  Sex: Female

DRUGS (7)
  1. AMLODIPINE BESILATE [Suspect]
     Indication: HYPERTENSION
     Dosage: UNK
     Dates: start: 2009
  2. SPIRIVA [Suspect]
     Dosage: UNK
  3. CLOPIDOGREL [Suspect]
     Dosage: UNK
  4. LEVOTHYROXINE SODIUM [Suspect]
     Dosage: UNK
  5. POTASSIUM CHLORIDE [Suspect]
     Dosage: UNK
  6. MONTELUKAST SODIUM [Suspect]
     Dosage: UNK
  7. FUROSEMIDE [Suspect]
     Dosage: UNK

REACTIONS (2)
  - Anaphylactic reaction [Not Recovered/Not Resolved]
  - Cheilitis [Not Recovered/Not Resolved]
